FAERS Safety Report 5394511-2 (Version None)
Quarter: 2007Q3

REPORT INFORMATION
  Report Type: 
  Country: None (occurrence: None)
  Receive Date: 20070723
  Receipt Date: 20070723
  Transmission Date: 20080115
  Serious: Yes (Hospitalization)
  Sender: FDA-Public Use
  Company Number: JP-BRISTOL-MYERS SQUIBB COMPANY-13853502

PATIENT
  Age: 40 Year
  Sex: Male

DRUGS (1)
  1. BLEOMYCIN [Suspect]

REACTIONS (1)
  - ULCER [None]
